FAERS Safety Report 17815710 (Version 1)
Quarter: 2020Q2

REPORT INFORMATION
  Report Type: Spontaneous
  Country: US (occurrence: US)
  Receive Date: 20200521
  Receipt Date: 20200521
  Transmission Date: 20200714
  Serious: No
  Sender: FDA-Public Use
  Company Number: None

PATIENT
  Age: 54 Year
  Sex: Female

DRUGS (19)
  1. FORTEO [Suspect]
     Active Substance: TERIPARATIDE
     Dosage: ?          OTHER DOSE:600UG/2.4ML PEN;?
     Route: 058
     Dates: start: 20200428
  2. CALCIUM [Concomitant]
     Active Substance: CALCIUM
  3. OMEPRAZOLE. [Concomitant]
     Active Substance: OMEPRAZOLE
  4. PREGABALIN. [Concomitant]
     Active Substance: PREGABALIN
  5. QVAR [Concomitant]
     Active Substance: BECLOMETHASONE DIPROPIONATE
  6. PROAIR HFA [Concomitant]
     Active Substance: ALBUTEROL SULFATE
  7. VITAMIN E [Concomitant]
     Active Substance: .ALPHA.-TOCOPHEROL
  8. GLUCOS/CHOND CAP [Concomitant]
  9. PREGABALIN. [Concomitant]
     Active Substance: PREGABALIN
  10. FAMOTIDINE. [Concomitant]
     Active Substance: FAMOTIDINE
  11. METHOTREXATE. [Concomitant]
     Active Substance: METHOTREXATE
  12. CLARITIN [Concomitant]
     Active Substance: LORATADINE
  13. TYLENOL [Concomitant]
     Active Substance: ACETAMINOPHEN
  14. LEVOTHYROXIN [Concomitant]
     Active Substance: LEVOTHYROXINE
  15. CENTRUM SILV TAB [Concomitant]
  16. VITAMIN B12 [Concomitant]
     Active Substance: CYANOCOBALAMIN
  17. QVAR [Concomitant]
     Active Substance: BECLOMETHASONE DIPROPIONATE
  18. CETIRIZINE SOL [Concomitant]
  19. OMEGA-3 ACIDS [Concomitant]
     Active Substance: OMEGA-3 FATTY ACIDS

REACTIONS (5)
  - Crohn^s disease [None]
  - Hepatic enzyme increased [None]
  - Therapeutic product effect decreased [None]
  - Pain in extremity [None]
  - Asthenia [None]
